FAERS Safety Report 16240531 (Version 1)
Quarter: 2019Q2

REPORT INFORMATION
  Report Type: Report from Study
  Country: US (occurrence: US)
  Receive Date: 20190425
  Receipt Date: 20190425
  Transmission Date: 20190711
  Serious: Yes (Life-Threatening, Other)
  Sender: FDA-Public Use
  Company Number: PHHY2019US072611

PATIENT
  Age: 11 Month
  Sex: Male
  Weight: 9.7 kg

DRUGS (78)
  1. ACTEMRA [Concomitant]
     Active Substance: TOCILIZUMAB
     Indication: PRODUCT USED FOR UNKNOWN INDICATION
     Dosage: 100 MG, QD (PRN)
     Route: 042
     Dates: start: 20190202
  2. DEXTROSE. [Concomitant]
     Active Substance: DEXTROSE
     Dosage: 3.48 ML, QD
     Route: 042
     Dates: start: 20190219, end: 20190219
  3. DEXTROSE. [Concomitant]
     Active Substance: DEXTROSE
     Dosage: 1.74 ML, QD
     Route: 042
     Dates: start: 20190222
  4. SODIUM PHOSPHATE [Concomitant]
     Active Substance: SODIUM PHOSPHATE
     Indication: PRODUCT USED FOR UNKNOWN INDICATION
     Dosage: 2.784 MMOL, QD
     Route: 042
     Dates: start: 20190221, end: 20190222
  5. CALCIUM CHLORIDE. [Concomitant]
     Active Substance: CALCIUM CHLORIDE
     Dosage: 87 MG, QD
     Route: 065
     Dates: start: 20190222
  6. LORAZEPAM. [Concomitant]
     Active Substance: LORAZEPAM
     Indication: PRODUCT USED FOR UNKNOWN INDICATION
     Dosage: 0.5 ML, Q6H (PRN) PREPK
     Route: 048
     Dates: start: 20190220, end: 20190220
  7. ATIVAN [Concomitant]
     Active Substance: LORAZEPAM
     Indication: PRODUCT USED FOR UNKNOWN INDICATION
     Dosage: 0.18 MG, Q6H (PRN)
     Route: 065
     Dates: start: 20190205, end: 20190220
  8. ONDANSETRON [Concomitant]
     Active Substance: ONDANSETRON
     Indication: PRODUCT USED FOR UNKNOWN INDICATION
     Dosage: 1.36 MG, Q4H (PRN)
     Route: 065
     Dates: start: 20190205, end: 20190205
  9. DEXTROSE. [Concomitant]
     Active Substance: DEXTROSE
     Dosage: 10.88 ML, Q8H
     Route: 042
     Dates: start: 20190208, end: 20190211
  10. KEPPRA [Concomitant]
     Active Substance: LEVETIRACETAM
     Dosage: 15 MG/ML, Q12H
     Route: 065
     Dates: start: 20190220
  11. BENADRYL [Concomitant]
     Active Substance: DIPHENHYDRAMINE HYDROCHLORIDE
     Dosage: 8.5 MG, PRN
     Route: 065
     Dates: start: 20190208, end: 20190211
  12. ATIVAN [Concomitant]
     Active Substance: LORAZEPAM
     Dosage: 0.2 MG, Q6H (PRN)
     Route: 065
     Dates: start: 20190220, end: 20190220
  13. VALTREX [Concomitant]
     Active Substance: VALACYCLOVIR HYDROCHLORIDE
     Indication: PRODUCT USED FOR UNKNOWN INDICATION
     Dosage: 175 MG, BID
     Route: 065
     Dates: start: 20190211, end: 20190220
  14. MAXIPIME [Concomitant]
     Active Substance: CEFEPIME HYDROCHLORIDE
     Indication: PRODUCT USED FOR UNKNOWN INDICATION
     Dosage: 435.2 MG, Q8H
     Route: 065
     Dates: start: 20190208, end: 20190211
  15. DEXTROSE. [Concomitant]
     Active Substance: DEXTROSE
     Dosage: 1.74 ML, QD
     Route: 042
     Dates: start: 20190217, end: 20190217
  16. DEXTROSE. [Concomitant]
     Active Substance: DEXTROSE
     Dosage: UNK
     Route: 042
     Dates: start: 20190220, end: 20190222
  17. POLYSPORIN [Concomitant]
     Active Substance: BACITRACIN ZINC\POLYMYXIN B SULFATE
     Indication: PRODUCT USED FOR UNKNOWN INDICATION
     Dosage: 1 APPLICATION (3 TIMES DAILY), PRN
     Route: 065
     Dates: start: 20190216
  18. SODIUM CHLORIDE. [Concomitant]
     Active Substance: SODIUM CHLORIDE
     Dosage: 100 ML/HR
     Route: 042
     Dates: start: 20190220
  19. VFEND [Concomitant]
     Active Substance: VORICONAZOLE
     Indication: PRODUCT USED FOR UNKNOWN INDICATION
     Dosage: 60 MG, Q12H (SODIUM CHLORIDE 0.9% 12 ML INJECTION)
     Route: 065
     Dates: start: 20190205, end: 20190220
  20. KEPPRA [Concomitant]
     Active Substance: LEVETIRACETAM
     Indication: PRODUCT USED FOR UNKNOWN INDICATION
     Dosage: 90 MG, BID
     Route: 065
     Dates: start: 20190210, end: 20190220
  21. BENADRYL [Concomitant]
     Active Substance: DIPHENHYDRAMINE HYDROCHLORIDE
     Dosage: 9 MG, QD (PRN)
     Route: 065
     Dates: start: 20190205
  22. OFIRMEV [Concomitant]
     Active Substance: ACETAMINOPHEN
     Indication: PRODUCT USED FOR UNKNOWN INDICATION
     Dosage: 10 MG/ML, Q6H (PRN) EXTEMP INJ
     Route: 065
     Dates: start: 20190220, end: 20190223
  23. ONDANSETRON [Concomitant]
     Active Substance: ONDANSETRON
     Dosage: 2 MG/2.5ML, Q8H (PRN) PREPK
     Route: 048
     Dates: start: 20190215, end: 20190220
  24. SOLU-CORTEF [Concomitant]
     Active Substance: HYDROCORTISONE SODIUM SUCCINATE
     Indication: PRODUCT USED FOR UNKNOWN INDICATION
     Dosage: 17.5 MG, PRN
     Dates: start: 20190208, end: 20190209
  25. HEPARIN [Concomitant]
     Active Substance: HEPARIN SODIUM
     Dosage: 30 U, PRN
     Route: 065
     Dates: start: 20190204
  26. LMX [Concomitant]
     Active Substance: LIDOCAINE
     Indication: PRODUCT USED FOR UNKNOWN INDICATION
     Dosage: 1 DF, PRN
     Route: 065
     Dates: start: 20190204
  27. SODIUM CHLORIDE. [Concomitant]
     Active Substance: SODIUM CHLORIDE
     Indication: PRODUCT USED FOR UNKNOWN INDICATION
     Dosage: 0.45 %, PRN/ 3.15 ML IV DILUTION
     Route: 042
     Dates: start: 20190204, end: 20190208
  28. SODIUM CHLORIDE. [Concomitant]
     Active Substance: SODIUM CHLORIDE
     Dosage: UNK
     Route: 040
     Dates: start: 20190208
  29. POTASSIUM CHLORIDE. [Concomitant]
     Active Substance: POTASSIUM CHLORIDE
     Indication: PRODUCT USED FOR UNKNOWN INDICATION
     Dosage: 0.4 MEQ/ML, QD (CENTRAL LINE ONLY) 2.62 M EQ
     Route: 065
     Dates: start: 20190213, end: 20190213
  30. CALCIUM CHLORIDE. [Concomitant]
     Active Substance: CALCIUM CHLORIDE
     Indication: PRODUCT USED FOR UNKNOWN INDICATION
     Dosage: 87 MG, QD
     Route: 065
     Dates: start: 20190217, end: 20190217
  31. CALCIUM CHLORIDE. [Concomitant]
     Active Substance: CALCIUM CHLORIDE
     Dosage: 174 MG, QD
     Route: 065
     Dates: start: 20190219, end: 20190219
  32. ZOVIRAX [Concomitant]
     Active Substance: ACYCLOVIR
     Indication: PRODUCT USED FOR UNKNOWN INDICATION
     Dosage: 43.47 MG, Q8H
     Route: 065
     Dates: start: 20190205, end: 20190205
  33. ZOFRAN [Concomitant]
     Active Substance: ONDANSETRON HYDROCHLORIDE
     Indication: PRODUCT USED FOR UNKNOWN INDICATION
     Dosage: 1.36 MG,Q8HR (PRN) EXTEMP INJ
     Route: 065
     Dates: start: 20190204, end: 20190205
  34. ZOFRAN [Concomitant]
     Active Substance: ONDANSETRON HYDROCHLORIDE
     Dosage: 1.36 MG,Q8HR (PRN) EXTEMP INJ
     Route: 065
     Dates: start: 20190205, end: 20190215
  35. ZOFRAN [Concomitant]
     Active Substance: ONDANSETRON HYDROCHLORIDE
     Dosage: 1.36 MG,Q8HR (PRN) EXTEMP INJ
     Route: 065
     Dates: start: 20190220, end: 20190220
  36. TYLENOL [Concomitant]
     Active Substance: ACETAMINOPHEN
     Dosage: 325 MG/10.15 ML, QD
     Route: 048
     Dates: start: 20190211, end: 20190211
  37. TYLENOL [Concomitant]
     Active Substance: ACETAMINOPHEN
     Dosage: 131.2 MG/3.75 ML, Q6H (PRN)
     Route: 048
     Dates: start: 20190219, end: 20190220
  38. MAXIPIME [Concomitant]
     Active Substance: CEFEPIME HYDROCHLORIDE
     Dosage: 440 MG, Q8H
     Route: 065
     Dates: start: 20190211, end: 20190220
  39. LEVAQUIN [Concomitant]
     Active Substance: LEVOFLOXACIN
     Indication: PRODUCT USED FOR UNKNOWN INDICATION
     Dosage: 90 MG, BID
     Route: 065
     Dates: start: 20190207, end: 20190211
  40. KYMRIAH [Suspect]
     Active Substance: TISAGENLECLEUCEL
     Indication: ACUTE LEUKAEMIA
     Dosage: ONCE/SINGLE
     Route: 041
     Dates: start: 20190211
  41. DEXTROSE. [Concomitant]
     Active Substance: DEXTROSE
     Indication: PRODUCT USED FOR UNKNOWN INDICATION
     Dosage: UNK
     Route: 042
     Dates: start: 20190204, end: 20190208
  42. VITAMIN K [Concomitant]
     Active Substance: PHYTONADIONE
     Indication: PRODUCT USED FOR UNKNOWN INDICATION
     Dosage: 5 MG, QD
     Route: 065
     Dates: start: 20190221
  43. SODIUM CHLORIDE. [Concomitant]
     Active Substance: SODIUM CHLORIDE
     Dosage: 6.21 ML, Q8H
     Route: 065
     Dates: start: 20190220
  44. SODIUM CHLORIDE. [Concomitant]
     Active Substance: SODIUM CHLORIDE
     Dosage: 92.8 ML, QD
     Route: 042
     Dates: start: 20190221, end: 20190221
  45. POTASSIUM PHOSPHATE [Concomitant]
     Active Substance: POTASSIUM PHOSPHATE
     Dosage: 2.784 MMOL, QD (IN SODIUM CHLORIDE 0.9% 11.6 ML)
     Route: 042
     Dates: start: 20190222, end: 20190222
  46. POTASSIUM CHLORIDE. [Concomitant]
     Active Substance: POTASSIUM CHLORIDE
     Dosage: 20 MEQ/ML, QD
     Route: 042
     Dates: start: 20190220, end: 20190221
  47. BENADRYL [Concomitant]
     Active Substance: DIPHENHYDRAMINE HYDROCHLORIDE
     Indication: PRODUCT USED FOR UNKNOWN INDICATION
     Dosage: 9 MG, Q6H (PRN)
     Route: 065
     Dates: start: 20190205, end: 20190205
  48. BENADRYL [Concomitant]
     Active Substance: DIPHENHYDRAMINE HYDROCHLORIDE
     Dosage: 9 MG, QD (PRN)
     Route: 065
     Dates: start: 20190211, end: 20190211
  49. ATIVAN [Concomitant]
     Active Substance: LORAZEPAM
     Dosage: 1 MG/0.5ML, Q6H
     Route: 048
     Dates: start: 20190205, end: 20190220
  50. TYLENOL [Concomitant]
     Active Substance: ACETAMINOPHEN
     Indication: PRODUCT USED FOR UNKNOWN INDICATION
     Dosage: 120 MG/3.75 ML, Q6H (PRN)
     Route: 048
     Dates: start: 20190204
  51. TYLENOL [Concomitant]
     Active Substance: ACETAMINOPHEN
     Dosage: 120 MG/3.75 ML, (PRN)
     Route: 048
     Dates: start: 20190208, end: 20190212
  52. TYLENOL [Concomitant]
     Active Substance: ACETAMINOPHEN
     Dosage: 325 MG/3.75 ML, (PRN)
     Route: 048
     Dates: start: 20190217, end: 20190219
  53. SOLU-CORTEF [Concomitant]
     Active Substance: HYDROCORTISONE SODIUM SUCCINATE
     Dosage: 17.5 MG, PRN
     Route: 065
     Dates: start: 20190210, end: 20190211
  54. HEPARIN [Concomitant]
     Active Substance: HEPARIN SODIUM
     Indication: PRODUCT USED FOR UNKNOWN INDICATION
     Dosage: 50 U, PRN
     Route: 065
     Dates: start: 20190204, end: 20190204
  55. SODIUM CHLORIDE. [Concomitant]
     Active Substance: SODIUM CHLORIDE
     Dosage: 23.2 ML, QD
     Route: 042
     Dates: start: 20190221, end: 20190222
  56. SODIUM CHLORIDE. [Concomitant]
     Active Substance: SODIUM CHLORIDE
     Dosage: 11.6 ML, ONCE (MED LINE, PRN)
     Route: 042
     Dates: start: 20190222, end: 20190222
  57. POTASSIUM PHOSPHATE [Concomitant]
     Active Substance: POTASSIUM PHOSPHATE
     Dosage: 1.392 MMOL, QD (IN SODIUM CHLORIDE 0.9% 11.6 ML)
     Route: 042
     Dates: start: 20190222, end: 20190222
  58. ZOVIRAX [Concomitant]
     Active Substance: ACYCLOVIR
     Dosage: 174 MG, BID
     Route: 065
     Dates: start: 20190205, end: 20190211
  59. VFEND [Concomitant]
     Active Substance: VORICONAZOLE
     Dosage: 60 MG, Q12H (SODIUM CHLORIDE 0.9% 12 ML INJECTION)
     Route: 065
     Dates: start: 20190220
  60. BENADRYL [Concomitant]
     Active Substance: DIPHENHYDRAMINE HYDROCHLORIDE
     Dosage: 8.5 MG, PRN
     Route: 065
     Dates: start: 20190219, end: 20190219
  61. BENADRYL [Concomitant]
     Active Substance: DIPHENHYDRAMINE HYDROCHLORIDE
     Dosage: 4.5 MG, Q6H (PRN)
     Route: 065
     Dates: start: 20190220, end: 20190220
  62. ADRENALIN [Concomitant]
     Active Substance: EPINEPHRINE
     Dosage: 0.09 MG, PRN
     Route: 065
     Dates: start: 20190217, end: 20190219
  63. EUCERIN [Concomitant]
     Active Substance: ENSULIZOLE\EUCERIN\OCTINOXATE\OCTISALATE\TITANIUM DIOXIDE\ZINC OXIDE
     Indication: PRODUCT USED FOR UNKNOWN INDICATION
     Dosage: 1 APPLICATION, PRN
     Route: 065
     Dates: start: 20190205
  64. CYTOXAN [Concomitant]
     Active Substance: CYCLOPHOSPHAMIDE
     Indication: PRODUCT USED FOR UNKNOWN INDICATION
     Dosage: 149 MG, QD
     Route: 041
     Dates: start: 20190205, end: 20190205
  65. MESNEX [Concomitant]
     Active Substance: MESNA
     Indication: PRODUCT USED FOR UNKNOWN INDICATION
     Dosage: 63 MG, QD (IN SODIUM CHLORIDE 0.9% 108.08 ML CHEMO INFUSION)
     Route: 041
     Dates: start: 20190205, end: 20190205
  66. ZYLOPRIM [Concomitant]
     Active Substance: ALLOPURINOL
     Indication: PRODUCT USED FOR UNKNOWN INDICATION
     Dosage: 30 MG, TID
     Route: 065
     Dates: start: 20190204
  67. ACTEMRA [Concomitant]
     Active Substance: TOCILIZUMAB
     Dosage: 100 MG, UNK
     Route: 042
     Dates: start: 20190220
  68. FAT EMULSION NOS [Concomitant]
     Active Substance: EGG PHOSPHOLIPIDS\SAFFLOWER OIL\SOYBEAN OIL
     Indication: PARENTERAL NUTRITION
     Dosage: UNK
     Route: 041
     Dates: start: 20190221, end: 20190223
  69. SODIUM CHLORIDE. [Concomitant]
     Active Substance: SODIUM CHLORIDE
     Dosage: 12 ML, Q12H
     Route: 065
     Dates: start: 20190220
  70. POTASSIUM PHOSPHATE [Concomitant]
     Active Substance: POTASSIUM PHOSPHATE
     Indication: PRODUCT USED FOR UNKNOWN INDICATION
     Dosage: 2.784 MMOL, QD (IN SODIUM CHLORIDE 0.9% 11.6 ML)
     Route: 042
     Dates: start: 20190221, end: 20190221
  71. POTASSIUM CHLORIDE. [Concomitant]
     Active Substance: POTASSIUM CHLORIDE
     Dosage: 2.784 MMOL, QD
     Route: 042
     Dates: start: 20190221, end: 20190221
  72. POTASSIUM CHLORIDE. [Concomitant]
     Active Substance: POTASSIUM CHLORIDE
     Dosage: 0.4 MEQ/ML, QD (CENTRAL LINE ONLY) 2.62 M EQ
     Route: 065
     Dates: start: 20190222
  73. ADRENALIN [Concomitant]
     Active Substance: EPINEPHRINE
     Indication: PRODUCT USED FOR UNKNOWN INDICATION
     Dosage: 0.09 MG, PRN
     Route: 065
     Dates: start: 20190205, end: 20190211
  74. SODIUM CHLORIDE. [Concomitant]
     Active Substance: SODIUM CHLORIDE
     Dosage: 100 ML, PRN
     Route: 040
     Dates: start: 20190211, end: 20190212
  75. SODIUM CHLORIDE. [Concomitant]
     Active Substance: SODIUM CHLORIDE
     Dosage: UNK, QD (PRN)
     Route: 040
     Dates: start: 20190219
  76. ZOVIRAX [Concomitant]
     Active Substance: ACYCLOVIR
     Dosage: 43.47 MG, Q8H
     Route: 065
     Dates: start: 20190220
  77. BENADRYL [Concomitant]
     Active Substance: DIPHENHYDRAMINE HYDROCHLORIDE
     Dosage: 8.5 MG, PRN
     Route: 065
     Dates: start: 20190217, end: 20190219
  78. HEPARIN [Concomitant]
     Active Substance: HEPARIN SODIUM
     Dosage: 100 U/ML, PRN (500 UNITS)
     Route: 065
     Dates: start: 20190204, end: 20190204

REACTIONS (46)
  - Ammonia decreased [Unknown]
  - Prothrombin time prolonged [Not Recovered/Not Resolved]
  - White blood cell count decreased [Not Recovered/Not Resolved]
  - Lymphocyte count decreased [Unknown]
  - Tachypnoea [Recovering/Resolving]
  - Alanine aminotransferase increased [Not Recovered/Not Resolved]
  - Blood fibrinogen decreased [Recovering/Resolving]
  - Haematocrit decreased [Unknown]
  - Blood triglycerides increased [Unknown]
  - N-terminal prohormone brain natriuretic peptide increased [Unknown]
  - Procalcitonin increased [Unknown]
  - Coagulopathy [Not Recovered/Not Resolved]
  - Blood creatinine decreased [Unknown]
  - Activated partial thromboplastin time prolonged [Unknown]
  - Haemoglobin decreased [Unknown]
  - Blood potassium decreased [Recovered/Resolved]
  - Blood sodium decreased [Recovered/Resolved]
  - Platelet count decreased [Unknown]
  - Pyrexia [Not Recovered/Not Resolved]
  - Serum ferritin increased [Unknown]
  - Monocyte count increased [Unknown]
  - Blood glucose increased [Unknown]
  - Blood calcium decreased [Unknown]
  - Cytokine release syndrome [Recovering/Resolving]
  - Aspartate aminotransferase increased [Not Recovered/Not Resolved]
  - pH body fluid abnormal [Unknown]
  - Reticulocyte count decreased [Unknown]
  - Blood magnesium increased [Recovered/Resolved]
  - Pneumatosis intestinalis [Recovering/Resolving]
  - Tachycardia [Not Recovered/Not Resolved]
  - Capillary disorder [Not Recovered/Not Resolved]
  - Blood lactate dehydrogenase increased [Unknown]
  - Protein total decreased [Unknown]
  - Red cell distribution width increased [Not Recovered/Not Resolved]
  - Blood albumin decreased [Unknown]
  - Red blood cell count decreased [Unknown]
  - Haematemesis [Unknown]
  - Blast cell count increased [Unknown]
  - Abdominal infection [Unknown]
  - Blood chloride increased [Recovered/Resolved]
  - Anion gap increased [Recovered/Resolved]
  - Blood urea decreased [Recovered/Resolved]
  - Carbon dioxide decreased [Recovered/Resolved]
  - Out of specification test results [Unknown]
  - Blood phosphorus decreased [Unknown]
  - International normalised ratio increased [Not Recovered/Not Resolved]

NARRATIVE: CASE EVENT DATE: 20190212
